FAERS Safety Report 4483860-8 (Version None)
Quarter: 2004Q4

REPORT INFORMATION
  Report Type: 
  Country: None (occurrence: None)
  Receive Date: 20041025
  Receipt Date: 20041025
  Transmission Date: 20050328
  Serious: Yes (Hospitalization)
  Sender: FDA-Public Use
  Company Number: None

PATIENT
  Age: 71 Year
  Sex: Male
  Weight: 71.2828 kg

DRUGS (9)
  1. CRESTOR [Suspect]
     Indication: CORONARY ARTERY DISEASE
     Dosage: 10 MG PO QD
     Route: 048
     Dates: start: 20040811
  2. CRESTOR [Suspect]
     Indication: PERIPHERAL VASCULAR DISORDER
     Dosage: 10 MG PO QD
     Route: 048
     Dates: start: 20040811
  3. CRESTOR [Suspect]
     Indication: STENT PLACEMENT
     Dosage: 10 MG PO QD
     Route: 048
     Dates: start: 20040811
  4. ASPIRIN [Concomitant]
  5. MAVIK [Concomitant]
  6. PREVACID [Concomitant]
  7. PLAVIX [Concomitant]
  8. TERAZOSIN HCL [Concomitant]
  9. PROPYLTHROURACIL [Concomitant]

REACTIONS (8)
  - DIARRHOEA [None]
  - FALL [None]
  - HYPERKALAEMIA [None]
  - HYPERTENSION [None]
  - HYPERTHYROIDISM [None]
  - RENAL FAILURE ACUTE [None]
  - RHABDOMYOLYSIS [None]
  - URINARY RETENTION [None]
